FAERS Safety Report 8912552 (Version 1)
Quarter: 2012Q4

REPORT INFORMATION
  Report Type: Report from Study
  Country: US (occurrence: US)
  Receive Date: 20121116
  Receipt Date: 20121116
  Transmission Date: 20130627
  Serious: Yes (Death, Hospitalization, Other)
  Sender: FDA-Public Use
  Company Number: US-PFIZER INC-2012285414

PATIENT
  Age: 69 Year
  Sex: Male

DRUGS (3)
  1. GEMCITABINE HYDROCHLORIDE [Suspect]
     Indication: ADENOCARCINOMA PANCREAS
     Dosage: 200 mg/m2, weekly
  2. CETUXIMAB [Suspect]
     Indication: ADENOCARCINOMA PANCREAS
     Dosage: 400 mg/m2, week 1
  3. CETUXIMAB [Suspect]
     Dosage: 250 mg/m2, weeks 2 to 7

REACTIONS (5)
  - Pneumonia aspiration [Fatal]
  - Ileus [Unknown]
  - Vomiting [Unknown]
  - Nausea [Unknown]
  - Infection [Unknown]
